FAERS Safety Report 5759664-2 (Version None)
Quarter: 2008Q2

REPORT INFORMATION
  Report Type: 
  Country: None (occurrence: None)
  Receive Date: 20080605
  Receipt Date: 20080605
  Transmission Date: 20081010
  Serious: Yes (Other)
  Sender: FDA-Public Use
  Company Number: GB-ABBOTT-08P-167-0434856-00

PATIENT
  Age: 44 Year
  Sex: Female

DRUGS (15)
  1. VALPROATE SODIUM [Suspect]
     Indication: BIPOLAR DISORDER
     Dosage: ABOUT 1500-2000MG/DAY
     Route: 065
  2. VALPROATE SODIUM [Suspect]
     Indication: AGITATION
  3. VALPROATE SODIUM [Suspect]
     Indication: HOSTILITY
  4. DIAZEPAM [Suspect]
     Indication: BIPOLAR DISORDER
     Route: 065
  5. DIAZEPAM [Suspect]
     Indication: AGITATION
  6. DIAZEPAM [Suspect]
     Indication: HOSTILITY
  7. HALOPERIDOL [Suspect]
     Indication: BIPOLAR DISORDER
     Route: 065
  8. HALOPERIDOL [Suspect]
     Indication: AGITATION
  9. HALOPERIDOL [Suspect]
     Indication: HOSTILITY
  10. OLANZAPINE [Suspect]
     Indication: BIPOLAR DISORDER
     Route: 065
  11. OLANZAPINE [Suspect]
     Indication: AGITATION
     Route: 065
  12. OLANZAPINE [Suspect]
     Indication: HOSTILITY
  13. ZUCLOPENTHIXOL [Suspect]
     Indication: BIPOLAR DISORDER
     Route: 065
  14. ZUCLOPENTHIXOL [Suspect]
     Indication: AGITATION
  15. ZUCLOPENTHIXOL [Suspect]
     Indication: HOSTILITY

REACTIONS (4)
  - DELUSION [None]
  - HYPERPROLACTINAEMIA [None]
  - SOMATIC DELUSION [None]
  - WEIGHT INCREASED [None]
